FAERS Safety Report 12338263 (Version 2)
Quarter: 2016Q2

REPORT INFORMATION
  Report Type: Spontaneous
  Country: FR (occurrence: FR)
  Receive Date: 20160505
  Receipt Date: 20160621
  Transmission Date: 20160815
  Serious: No
  Sender: FDA-Public Use
  Company Number: FR-BRISTOL-MYERS SQUIBB COMPANY-BMS-2016-034541

PATIENT

DRUGS (2)
  1. HYDREA [Suspect]
     Active Substance: HYDROXYUREA
     Indication: THROMBOCYTOPENIA
     Dosage: 500 MG, QD
     Route: 048
  2. HYDREA [Suspect]
     Active Substance: HYDROXYUREA
     Dosage: 500 MG, UNK
     Route: 048
     Dates: start: 20160425

REACTIONS (1)
  - Off label use [Unknown]
